FAERS Safety Report 8141366-9 (Version None)
Quarter: 2012Q1

REPORT INFORMATION
  Report Type: 
  Country: None (occurrence: None)
  Receive Date: 20120216
  Receipt Date: 20120208
  Transmission Date: 20120608
  Serious: Yes (Death, Other)
  Sender: FDA-Public Use
  Company Number: PHFR2012GB001067

PATIENT
  Age: 36 Year
  Sex: Male

DRUGS (8)
  1. CLONAZEPAM [Concomitant]
     Dosage: UNK UKN, UNK
  2. FOLIC ACID [Concomitant]
  3. OMEPRAZOLE [Concomitant]
     Dosage: UNK UKN, UNK
  4. ARIPIPRAZOLE [Suspect]
     Dosage: 5 MG, UNK
     Route: 048
  5. WARFARIN SODIUM [Concomitant]
     Dosage: UNK UKN, UNK
  6. CLOZAPINE [Suspect]
     Indication: SCHIZOPHRENIA
     Dosage: 450 MG
     Route: 048
     Dates: end: 20120109
  7. SIMVASTATIN [Suspect]
     Dosage: UNK UKN, UNK
  8. VALPROATE SODIUM [Concomitant]
     Dosage: UNK UKN, UNK

REACTIONS (11)
  - ALANINE AMINOTRANSFERASE INCREASED [None]
  - NEUROLEPTIC MALIGNANT SYNDROME [None]
  - RENAL IMPAIRMENT [None]
  - BLOOD CREATINE PHOSPHOKINASE INCREASED [None]
  - ASPARTATE AMINOTRANSFERASE INCREASED [None]
  - BLOOD TRIGLYCERIDES DECREASED [None]
  - CIRCULATORY COLLAPSE [None]
  - MALAISE [None]
  - SEPSIS [None]
  - HEPATIC FUNCTION ABNORMAL [None]
  - HAEMOGLOBIN DECREASED [None]
